FAERS Safety Report 23883481 (Version 1)
Quarter: 2024Q2

REPORT INFORMATION
  Report Type: Spontaneous
  Country: JP (occurrence: JP)
  Receive Date: 20240522
  Receipt Date: 20240522
  Transmission Date: 20240716
  Serious: Yes (Other)
  Sender: FDA-Public Use
  Company Number: JP-CHUGAI-2024016553

PATIENT
  Age: 80 Year
  Sex: Female

DRUGS (2)
  1. PHESGO [Suspect]
     Active Substance: HYALURONIDASE-ZZXF\PERTUZUMAB\TRASTUZUMAB
     Indication: Breast cancer
     Dosage: UNK, SINGLE
     Route: 058
     Dates: start: 20240416, end: 20240416
  2. ERIBULIN [Suspect]
     Active Substance: ERIBULIN
     Indication: Breast cancer
     Dosage: UNK, SINGLE
     Route: 065
     Dates: start: 20240416, end: 20240416

REACTIONS (3)
  - Lymphangiosis carcinomatosa [Unknown]
  - Disease progression [Unknown]
  - Pneumonia [Not Recovered/Not Resolved]
